FAERS Safety Report 12362867 (Version 1)
Quarter: 2016Q2

REPORT INFORMATION
  Report Type: Spontaneous
  Country: US (occurrence: US)
  Receive Date: 20160512
  Receipt Date: 20160512
  Transmission Date: 20160815
  Serious: No
  Sender: FDA-Public Use
  Company Number: US-UCBSA-2014017263

PATIENT
  Age: 28 Year
  Sex: Female

DRUGS (6)
  1. CIMZIA [Suspect]
     Active Substance: CERTOLIZUMAB PEGOL
     Dosage: 400 MG, EV 4 WEEKS
     Dates: start: 201410
  2. AMLODIPINE BESYLATE. [Suspect]
     Active Substance: AMLODIPINE BESYLATE
     Indication: PRODUCT USED FOR UNKNOWN INDICATION
     Dosage: TOOK ONE DAY
     Dates: start: 20150414
  3. VITAMIN D [Concomitant]
     Active Substance: CHOLECALCIFEROL
     Indication: VITAMIN D DECREASED
     Dosage: 2000 MG
  4. METOPROLOL. [Suspect]
     Active Substance: METOPROLOL
     Indication: PRODUCT USE ISSUE
     Dosage: UNK
     Dates: start: 20150325, end: 20150410
  5. CIMZIA [Suspect]
     Active Substance: CERTOLIZUMAB PEGOL
     Indication: CROHN^S DISEASE
     Dosage: INJECT 400 MG EVERY 2 WEEKSX3 AND THEN 200 MG EVERY 2 WEEKS
     Dates: start: 20141016, end: 201410
  6. LISINOPRIL. [Suspect]
     Active Substance: LISINOPRIL
     Indication: PRODUCT USED FOR UNKNOWN INDICATION
     Dosage: UNK
     Dates: start: 201503, end: 2015

REACTIONS (10)
  - Impaired healing [Not Recovered/Not Resolved]
  - Product quality issue [Unknown]
  - Drug dose omission [Unknown]
  - Wrong technique in product usage process [Unknown]
  - Rash [Not Recovered/Not Resolved]
  - Nerve injury [Not Recovered/Not Resolved]
  - Drug interaction [Recovering/Resolving]
  - Photosensitivity reaction [Not Recovered/Not Resolved]
  - Off label use [Unknown]
  - Joint swelling [Not Recovered/Not Resolved]

NARRATIVE: CASE EVENT DATE: 2014
